FAERS Safety Report 7454421-3 (Version None)
Quarter: 2011Q2

REPORT INFORMATION
  Report Type: 
  Country: None (occurrence: None)
  Receive Date: 20110425
  Receipt Date: 20110413
  Transmission Date: 20111010
  Serious: Yes (Disabling)
  Sender: FDA-Public Use
  Company Number: GB-ACCORD-008767

PATIENT
  Sex: Female
  Weight: 75 kg

DRUGS (6)
  1. ATORVASTATIN [Suspect]
     Indication: TYPE IIA HYPERLIPIDAEMIA
     Dosage: 10.00 MG, ORAL
     Route: 048
     Dates: start: 20071001, end: 20110301
  2. BENDROFLUMETIAZIDE [Concomitant]
  3. LISINOPRIL [Concomitant]
  4. SIMVASTATIN [Suspect]
     Indication: TYPE IIA HYPERLIPIDAEMIA
     Dosage: 40.00 MG, ORAL
     Route: 048
     Dates: start: 20030101, end: 20060101
  5. ASPIRIN [Concomitant]
  6. ESOMEPRAZOLE MAGNESIUM [Concomitant]

REACTIONS (3)
  - AMNESIA [None]
  - QUALITY OF LIFE DECREASED [None]
  - PAIN [None]
